FAERS Safety Report 8684883 (Version 2)
Quarter: 2013Q4

REPORT INFORMATION
  Report Type: Report from Study
  Country: US (occurrence: US)
  Receive Date: 20120726
  Receipt Date: 20131105
  Transmission Date: 20140711
  Serious: Yes (Hospitalization)
  Sender: FDA-Public Use
  Company Number: US-009507513-1203USA01731

PATIENT
  Age: 63 Year
  Sex: Male

DRUGS (12)
  1. PRINIVIL [Suspect]
     Dosage: 40 MG, UNK
     Route: 048
     Dates: start: 20101211
  2. PRINIVIL [Suspect]
     Dosage: 40 MG, UNK
     Route: 048
     Dates: end: 20110408
  3. HYDRALAZINE HYDROCHLORIDE [Suspect]
     Dosage: 50 MG, BID
     Dates: start: 201110
  4. HYDRALAZINE HYDROCHLORIDE [Suspect]
     Dosage: 50 MG, UNK
     Dates: start: 201112
  5. HYDRALAZINE HYDROCHLORIDE [Suspect]
     Dosage: 100 MG, TID
  6. BLINDED THERAPY [Suspect]
     Indication: TYPE 2 DIABETES MELLITUS
     Dosage: 40 MG, UNK
     Dates: start: 20101211, end: 20110402
  7. BLINDED THERAPY [Suspect]
     Dosage: 40 MG, UNK
     Dates: start: 20120601
  8. INSULIN GLARGINE [Suspect]
     Indication: TYPE 2 DIABETES MELLITUS
     Dosage: 80 IU, UNK
     Route: 058
  9. SAXAGLIPTIN [Suspect]
     Indication: TYPE 2 DIABETES MELLITUS
     Dosage: UNK
     Dates: start: 20101211
  10. ASPIRIN [Concomitant]
     Dates: start: 20101210
  11. NIACIN [Concomitant]
  12. PHENYTOIN [Concomitant]
     Dosage: UNK
     Dates: start: 20110729

REACTIONS (8)
  - Coronary artery disease [Recovered/Resolved]
  - Renal failure acute [Recovered/Resolved]
  - Coronary artery disease [Recovered/Resolved]
  - Hypotension [Recovered/Resolved]
  - Cerebral disorder [Recovered/Resolved]
  - Renal failure acute [Recovered/Resolved]
  - Hypotension [Recovered/Resolved]
  - Hypotension [Recovered/Resolved]
